FAERS Safety Report 4311830-9 (Version None)
Quarter: 2004Q1

REPORT INFORMATION
  Report Type: 
  Country: None (occurrence: None)
  Receive Date: 20040304
  Receipt Date: 20031031
  Transmission Date: 20041129
  Serious: Yes (Hospitalization)
  Sender: FDA-Public Use
  Company Number: WAES 0311USA00083

PATIENT
  Age: 69 Year
  Sex: Male
  Weight: 56 kg

DRUGS (10)
  1. [THERAPY UNSPECIFIED] [Concomitant]
  2. ALBUTEROL [Concomitant]
  3. COMBIVENT [Concomitant]
  4. ALPRAZOLAM [Concomitant]
  5. LORATADINE [Concomitant]
  6. METOPROLOL TARTRATE [Concomitant]
  7. RABEPRAZOLE SODIUM [Concomitant]
  8. VIOXX [Suspect]
     Indication: ARTHRITIS
     Route: 048
     Dates: start: 20010101, end: 20031029
  9. VIOXX [Suspect]
     Route: 048
     Dates: start: 20030918
  10. SALMETEROL [Concomitant]

REACTIONS (6)
  - ADVERSE EVENT [None]
  - COLLAPSE OF LUNG [None]
  - LUNG DISORDER [None]
  - MEDICATION ERROR [None]
  - MYOCARDIAL INFARCTION [None]
  - RESPIRATORY TRACT INFECTION [None]
